FAERS Safety Report 5629363-6 (Version None)
Quarter: 2008Q1

REPORT INFORMATION
  Report Type: 
  Country: None (occurrence: None)
  Receive Date: 20080218
  Receipt Date: 20080212
  Transmission Date: 20080703
  Serious: Yes (Death)
  Sender: FDA-Public Use
  Company Number: US-ELI_LILLY_AND_COMPANY-US200802002766

PATIENT
  Sex: Female

DRUGS (4)
  1. ZYPREXA [Suspect]
     Dates: start: 20021216
  2. ZYPREXA [Suspect]
     Dates: start: 20030113
  3. ZYPREXA [Suspect]
     Dates: start: 20030311
  4. ZYPREXA [Suspect]
     Dates: start: 20030423

REACTIONS (9)
  - CARDIAC FAILURE CONGESTIVE [None]
  - DEATH [None]
  - DEMENTIA [None]
  - DEMENTIA ALZHEIMER'S TYPE [None]
  - DEPRESSION [None]
  - FALL [None]
  - HEAD INJURY [None]
  - HEART RATE IRREGULAR [None]
  - PSYCHOTIC DISORDER [None]
